FAERS Safety Report 9310944 (Version 4)
Quarter: 2013Q3

REPORT INFORMATION
  Report Type: Spontaneous
  Country: NO (occurrence: NO)
  Receive Date: 20130528
  Receipt Date: 20130911
  Transmission Date: 20140515
  Serious: Yes (Hospitalization)
  Sender: FDA-Public Use
  Company Number: NO-JNJFOC-20130514284

PATIENT
  Age: 36 Year
  Sex: Male

DRUGS (10)
  1. SIMPONI [Suspect]
     Indication: ANKYLOSING SPONDYLITIS
     Route: 058
     Dates: start: 201208, end: 201208
  2. SIMPONI [Suspect]
     Indication: ANKYLOSING SPONDYLITIS
     Dosage: 3-4 GOLIMUMAB INJECTIONS DURING SPRING 2012
     Route: 058
     Dates: start: 2012
  3. SIMPONI [Suspect]
     Indication: ANKYLOSING SPONDYLITIS
     Route: 058
     Dates: start: 2010
  4. SOLU-MEDROL [Concomitant]
     Route: 065
  5. IMUREL [Concomitant]
     Route: 065
  6. PREDNISOLON [Concomitant]
     Route: 065
  7. IBUX [Concomitant]
     Route: 065
  8. SOMAC [Concomitant]
     Route: 065
  9. PARACET [Concomitant]
     Route: 065
  10. NEURONTIN [Concomitant]
     Route: 065

REACTIONS (1)
  - Myelopathy [Not Recovered/Not Resolved]
